FAERS Safety Report 17869881 (Version 1)
Quarter: 2020Q2

REPORT INFORMATION
  Report Type: Spontaneous
  Country: US (occurrence: US)
  Receive Date: 20200608
  Receipt Date: 20200608
  Transmission Date: 20200714
  Serious: No
  Sender: FDA-Public Use
  Company Number: US-BAYER-2020-109766

PATIENT
  Sex: Female

DRUGS (1)
  1. BETASERON [Suspect]
     Active Substance: INTERFERON BETA-1B

REACTIONS (5)
  - Injection site erythema [Not Recovered/Not Resolved]
  - Night sweats [None]
  - Injection site swelling [Not Recovered/Not Resolved]
  - Drug intolerance [None]
  - Arthralgia [None]
